FAERS Safety Report 9416302 (Version 1)
Quarter: 2013Q3

REPORT INFORMATION
  Report Type: Spontaneous
  Country: US (occurrence: US)
  Receive Date: 20130724
  Receipt Date: 20130724
  Transmission Date: 20140515
  Serious: Yes (Other)
  Sender: FDA-Public Use
  Company Number: US-SANOFI-AVENTIS-2013SA073797

PATIENT
  Age: 86 Year
  Sex: Male

DRUGS (3)
  1. LANTUS SOLOSTAR [Suspect]
     Indication: TYPE 1 DIABETES MELLITUS
     Dosage: DOSE: 12 UNITS IN MORNING AND 14 UNITS IN EVENING
     Route: 058
     Dates: start: 2013
  2. SOLOSTAR [Suspect]
     Indication: TYPE 1 DIABETES MELLITUS
     Dates: start: 2013
  3. HUMALOG [Concomitant]

REACTIONS (4)
  - Macular degeneration [Unknown]
  - Visual impairment [Unknown]
  - Headache [Unknown]
  - Stress [Unknown]
